FAERS Safety Report 19989204 (Version 1)
Quarter: 2021Q4

REPORT INFORMATION
  Report Type: Spontaneous
  Country: ES (occurrence: ES)
  Receive Date: 20211025
  Receipt Date: 20211025
  Transmission Date: 20220303
  Serious: Yes (Life-Threatening, Hospitalization, Other)
  Sender: FDA-Public Use
  Company Number: ES-AEMPS-1018771

PATIENT
  Age: 47 Year
  Sex: Female

DRUGS (5)
  1. VENLAFAXINE [Suspect]
     Active Substance: VENLAFAXINE HYDROCHLORIDE
     Indication: Product used for unknown indication
     Dosage: 7500 MILLIGRAM, (1 TOTAL)
     Route: 048
     Dates: start: 20210929, end: 20210929
  2. TIANEPTINE SODIUM [Suspect]
     Active Substance: TIANEPTINE SODIUM
     Indication: Product used for unknown indication
     Dosage: 875 MILLIGRAM, (1 TOTAL)
     Route: 048
     Dates: start: 20210929, end: 20210929
  3. CLONAZEPAM [Suspect]
     Active Substance: CLONAZEPAM
     Indication: Product used for unknown indication
     Dosage: 360 MILLIGRAM (1 TOTAL)
     Route: 048
     Dates: start: 20210929, end: 20210929
  4. VENLAFAXINE [Concomitant]
     Active Substance: VENLAFAXINE HYDROCHLORIDE
     Indication: Borderline personality disorder
     Dosage: 300 MILLIGRAM, ONCE A DAY (2 TABLETS IN THE MORNING)
     Route: 048
     Dates: start: 20150907
  5. TIANEPTINE SODIUM [Concomitant]
     Active Substance: TIANEPTINE SODIUM
     Indication: Borderline personality disorder
     Dosage: 12.5 MILLIGRAM (1 TABLET EVERY 8 HOURS)
     Route: 048
     Dates: start: 20191206

REACTIONS (2)
  - Respiratory failure [Recovered/Resolved]
  - Depressed level of consciousness [Recovering/Resolving]

NARRATIVE: CASE EVENT DATE: 20210929
